FAERS Safety Report 5960650-8 (Version None)
Quarter: 2008Q4

REPORT INFORMATION
  Report Type: 
  Country: None (occurrence: None)
  Receive Date: 20081120
  Receipt Date: 20080905
  Transmission Date: 20090506
  Serious: No
  Sender: FDA-Public Use
  Company Number: US-ABBOTT-08P-163-0474861-00

PATIENT
  Sex: Female
  Weight: 56.75 kg

DRUGS (2)
  1. BIAXIN [Suspect]
     Indication: SINUSITIS
     Route: 048
  2. KIRVA [Concomitant]
     Indication: ORAL CONTRACEPTION
     Route: 048

REACTIONS (1)
  - VOMITING [None]
